FAERS Safety Report 23034555 (Version 1)
Quarter: 2023Q4

REPORT INFORMATION
  Report Type: Spontaneous
  Country: US (occurrence: None)
  Receive Date: 20231005
  Receipt Date: 20231005
  Transmission Date: 20240110
  Serious: Yes (Other)
  Sender: FDA-Public Use
  Company Number: None

PATIENT
  Age: 6 Year
  Sex: Male
  Weight: 22.05 kg

DRUGS (1)
  1. CETIRIZINE [Suspect]
     Active Substance: CETIRIZINE HYDROCHLORIDE
     Indication: Multiple allergies
     Dosage: OTHER QUANTITY : 2.5 ML;?FREQUENCY : AT BEDTIME;?
     Route: 048
     Dates: start: 20230926, end: 20231003

REACTIONS (4)
  - Anger [None]
  - Crying [None]
  - Aggression [None]
  - Frustration tolerance decreased [None]

NARRATIVE: CASE EVENT DATE: 20231004
